FAERS Safety Report 16658353 (Version 1)
Quarter: 2019Q3

REPORT INFORMATION
  Report Type: Spontaneous
  Country: US (occurrence: US)
  Receive Date: 20190801
  Receipt Date: 20190801
  Transmission Date: 20191004
  Serious: No
  Sender: FDA-Public Use
  Company Number: None

PATIENT
  Age: 47 Year
  Sex: Male

DRUGS (2)
  1. CLOBETASOL PROPIONATE 0.05% [Suspect]
     Active Substance: CLOBETASOL PROPIONATE
  2. DESOXIMETASONE. [Suspect]
     Active Substance: DESOXIMETASONE

REACTIONS (1)
  - Drug ineffective [None]

NARRATIVE: CASE EVENT DATE: 20190801
